FAERS Safety Report 5903114-X (Version None)
Quarter: 2008Q3

REPORT INFORMATION
  Report Type: 
  Country: None (occurrence: None)
  Receive Date: 20080929
  Receipt Date: 20080929
  Transmission Date: 20090109
  Serious: Yes (Hospitalization)
  Sender: FDA-Public Use
  Company Number: None

PATIENT
  Age: 15 Year
  Sex: Female
  Weight: 72 kg

DRUGS (1)
  1. PROPYLTHIOURACIL [Suspect]
     Indication: BASEDOW'S DISEASE
     Dosage: 100 TID PO
     Route: 048

REACTIONS (9)
  - ABDOMINAL PAIN [None]
  - BRADYCARDIA [None]
  - CARDIAC ARREST [None]
  - DIARRHOEA [None]
  - HEPATIC FAILURE [None]
  - HEPATIC NECROSIS [None]
  - HEPATITIS [None]
  - LIVER TRANSPLANT [None]
  - VOMITING [None]
